FAERS Safety Report 12155091 (Version 3)
Quarter: 2016Q2

REPORT INFORMATION
  Report Type: Spontaneous
  Country: IL (occurrence: IL)
  Receive Date: 20160307
  Receipt Date: 20160630
  Transmission Date: 20160815
  Serious: Yes (Other)
  Sender: FDA-Public Use
  Company Number: IL-ABBVIE-16P-082-1572595-00

PATIENT
  Age: 49 Year
  Sex: Male

DRUGS (18)
  1. SEROQUEL [Concomitant]
     Active Substance: QUETIAPINE FUMARATE
     Indication: PRODUCT USED FOR UNKNOWN INDICATION
  2. SALIKAREN [Concomitant]
     Indication: PRODUCT USED FOR UNKNOWN INDICATION
  3. CLONEX [Concomitant]
     Indication: PRODUCT USED FOR UNKNOWN INDICATION
  4. VIEKIRAX [Suspect]
     Active Substance: OMBITASVIR\PARITAPREVIR\RITONAVIR
     Indication: HEPATITIS C
     Route: 048
     Dates: start: 201506, end: 201509
  5. URSOLIT [Concomitant]
     Indication: PRODUCT USED FOR UNKNOWN INDICATION
  6. DEKINET [Concomitant]
     Indication: PRODUCT USED FOR UNKNOWN INDICATION
  7. HUMALOG MIX50/50 [Concomitant]
     Active Substance: INSULIN LISPRO
     Indication: PRODUCT USED FOR UNKNOWN INDICATION
     Dosage: MIX 50
  8. EXVIERA [Suspect]
     Active Substance: DASABUVIR
     Indication: HEPATITIS C
     Route: 048
     Dates: start: 201506, end: 201509
  9. RIBAVIRIN. [Suspect]
     Active Substance: RIBAVIRIN
     Indication: HEPATITIS C
     Route: 048
  10. ENALADEX [Concomitant]
     Active Substance: ENALAPRIL MALEATE
     Indication: PRODUCT USED FOR UNKNOWN INDICATION
  11. LICARBIUM [Concomitant]
     Indication: PRODUCT USED FOR UNKNOWN INDICATION
  12. AGISPOR [Concomitant]
     Indication: PRODUCT USED FOR UNKNOWN INDICATION
  13. COMAGIS [Concomitant]
     Indication: PRODUCT USED FOR UNKNOWN INDICATION
     Dosage: 15 GR
  14. FREESTYLE [Concomitant]
     Indication: PRODUCT USED FOR UNKNOWN INDICATION
     Dosage: STRIPS
  15. RISPERDAL [Concomitant]
     Active Substance: RISPERIDONE
     Indication: PRODUCT USED FOR UNKNOWN INDICATION
  16. CETRIMIDE [Concomitant]
     Active Substance: CETRIMIDE\LIDOCAINE
     Indication: PRODUCT USED FOR UNKNOWN INDICATION
  17. TOPISALEN [Concomitant]
     Indication: PRODUCT USED FOR UNKNOWN INDICATION
  18. AQUA [Concomitant]
     Indication: PRODUCT USED FOR UNKNOWN INDICATION
     Dosage: 100 GR

REACTIONS (7)
  - Small intestine carcinoma metastatic [Unknown]
  - Splenomegaly [Unknown]
  - Chronic gastritis [Unknown]
  - Adenocarcinoma gastric [Unknown]
  - Large intestine polyp [Unknown]
  - Anaemia [Unknown]
  - Hepatic enzyme decreased [Recovered/Resolved]

NARRATIVE: CASE EVENT DATE: 20151126
